FAERS Safety Report 7897991-3 (Version None)
Quarter: 2011Q4

REPORT INFORMATION
  Report Type: 
  Country: None (occurrence: None)
  Receive Date: 20111107
  Receipt Date: 20111107
  Transmission Date: 20120403
  Serious: Yes (Other)
  Sender: FDA-Public Use
  Company Number: None

PATIENT
  Age: 62 Year
  Sex: Female
  Weight: 81.646 kg

DRUGS (4)
  1. CYMBALTA [Suspect]
     Indication: FIBROMYALGIA
  2. CYMBALTA [Suspect]
     Indication: PAIN
  3. CYMBALTA [Suspect]
     Indication: DEPRESSION
  4. TRAZODONE HCL [Concomitant]
     Indication: SOMNOLENCE

REACTIONS (1)
  - COLITIS MICROSCOPIC [None]
